FAERS Safety Report 5268507-5 (Version None)
Quarter: 2007Q1

REPORT INFORMATION
  Report Type: 
  Country: None (occurrence: None)
  Receive Date: 20070313
  Receipt Date: 20070228
  Transmission Date: 20070707
  Serious: Yes (Hospitalization)
  Sender: FDA-Public Use
  Company Number: 2005BI002971

PATIENT
  Age: 48 Year
  Sex: Male

DRUGS (2)
  1. AVONEX [Suspect]
     Indication: NEUROMYELITIS OPTICA
     Dosage: 30 UG; QW; IM
     Route: 030
     Dates: start: 20020715
  2. AVONEX [Suspect]
     Indication: NEUROMYELITIS OPTICA
     Dosage: 30 UG; QW; IM
     Route: 030

REACTIONS (4)
  - CONDITION AGGRAVATED [None]
  - INFLUENZA LIKE ILLNESS [None]
  - MULTIPLE SCLEROSIS [None]
  - PANCREATITIS [None]
